FAERS Safety Report 7049751-3 (Version None)
Quarter: 2010Q4

REPORT INFORMATION
  Report Type: 
  Country: None (occurrence: None)
  Receive Date: 20101018
  Receipt Date: 20101008
  Transmission Date: 20110411
  Serious: Yes (Hospitalization)
  Sender: FDA-Public Use
  Company Number: B0679590A

PATIENT
  Age: 50 Year
  Sex: Male

DRUGS (1)
  1. NEOTIGASON [Suspect]
     Indication: PITYRIASIS RUBRA PILARIS
     Route: 048
     Dates: start: 20100809, end: 20100906

REACTIONS (3)
  - ACUTE RESPIRATORY DISTRESS SYNDROME [None]
  - DYSPNOEA [None]
  - PYREXIA [None]
